FAERS Safety Report 16802949 (Version 1)
Quarter: 2019Q3

REPORT INFORMATION
  Report Type: Spontaneous
  Country: BR (occurrence: BR)
  Receive Date: 20190913
  Receipt Date: 20190913
  Transmission Date: 20191005
  Serious: Yes (Other)
  Sender: FDA-Public Use
  Company Number: BR-ABBVIE-19K-020-2915500-00

PATIENT
  Sex: Female
  Weight: 72 kg

DRUGS (13)
  1. HUMIRA [Suspect]
     Active Substance: ADALIMUMAB
     Route: 058
  2. PRELONE [Concomitant]
     Active Substance: PREDNISOLONE
     Indication: RHEUMATOID ARTHRITIS
     Route: 048
  3. HYDROCHLOROTHIAZIDE. [Concomitant]
     Active Substance: HYDROCHLOROTHIAZIDE
     Indication: HYPERTENSION
     Route: 048
     Dates: start: 2015
  4. PRELONE [Concomitant]
     Active Substance: PREDNISOLONE
     Route: 048
     Dates: start: 201907
  5. METHOTREXATE. [Concomitant]
     Active Substance: METHOTREXATE
     Indication: PRODUCT USED FOR UNKNOWN INDICATION
     Route: 048
     Dates: end: 201901
  6. LEFLUNOMIDE. [Concomitant]
     Active Substance: LEFLUNOMIDE
     Indication: RHEUMATOID ARTHRITIS
     Route: 048
     Dates: start: 2015
  7. PRELONE [Concomitant]
     Active Substance: PREDNISOLONE
     Route: 048
     Dates: start: 201902, end: 201904
  8. CAPILAREMA [Concomitant]
     Indication: CARDIOVASCULAR DISORDER
     Route: 048
     Dates: start: 201809
  9. PRELONE [Concomitant]
     Active Substance: PREDNISOLONE
     Route: 048
     Dates: start: 201812, end: 201902
  10. OMEPRAZOLE. [Concomitant]
     Active Substance: OMEPRAZOLE
     Indication: GASTRIC DISORDER
     Route: 048
     Dates: start: 2014
  11. HUMIRA [Suspect]
     Active Substance: ADALIMUMAB
     Indication: RHEUMATOID ARTHRITIS
     Route: 058
     Dates: start: 2016
  12. LOSARTAN. [Concomitant]
     Active Substance: LOSARTAN
     Indication: HYPERTENSION
     Route: 048
     Dates: start: 2015
  13. HUMIRA [Suspect]
     Active Substance: ADALIMUMAB
     Route: 058

REACTIONS (43)
  - Paralysis [Recovering/Resolving]
  - Mobility decreased [Recovering/Resolving]
  - Paralysis [Recovering/Resolving]
  - Hypoaesthesia [Recovering/Resolving]
  - Asthenopia [Recovering/Resolving]
  - Visual impairment [Recovering/Resolving]
  - Musculoskeletal disorder [Recovered/Resolved]
  - Peripheral swelling [Unknown]
  - Focal dyscognitive seizures [Recovering/Resolving]
  - Visual impairment [Recovering/Resolving]
  - Asthenopia [Recovering/Resolving]
  - Vomiting [Recovering/Resolving]
  - Crying [Recovered/Resolved]
  - Pain [Recovered/Resolved]
  - Mobility decreased [Recovering/Resolving]
  - Neuritis [Recovering/Resolving]
  - Visual impairment [Recovering/Resolving]
  - Hypoaesthesia [Recovering/Resolving]
  - Nausea [Recovering/Resolving]
  - Gait disturbance [Recovered/Resolved]
  - Feeling cold [Recovered/Resolved]
  - Abscess [Recovered/Resolved]
  - Neuropathic muscular atrophy [Recovering/Resolving]
  - Neuropathic muscular atrophy [Recovering/Resolving]
  - Mobility decreased [Recovering/Resolving]
  - Nausea [Recovering/Resolving]
  - Diarrhoea [Recovering/Resolving]
  - Paralysis [Recovering/Resolving]
  - Neuropathic muscular atrophy [Recovering/Resolving]
  - Blood cholesterol increased [Recovering/Resolving]
  - Focal dyscognitive seizures [Recovering/Resolving]
  - Hypoaesthesia [Recovering/Resolving]
  - Asthenopia [Recovering/Resolving]
  - Nausea [Recovering/Resolving]
  - Diarrhoea [Recovering/Resolving]
  - Joint abscess [Recovered/Resolved]
  - Focal dyscognitive seizures [Recovering/Resolving]
  - Neuritis [Recovering/Resolving]
  - Neuritis [Recovering/Resolving]
  - Vomiting [Recovering/Resolving]
  - Vomiting [Recovering/Resolving]
  - Diarrhoea [Recovering/Resolving]
  - Back pain [Recovered/Resolved]

NARRATIVE: CASE EVENT DATE: 2017
